FAERS Safety Report 19377388 (Version 6)
Quarter: 2024Q1

REPORT INFORMATION
  Report Type: Report from Study
  Country: US (occurrence: US)
  Receive Date: 20210604
  Receipt Date: 20240205
  Transmission Date: 20240409
  Serious: Yes (Other)
  Sender: FDA-Public Use
  Company Number: US-SHIRE-US201927961AA

PATIENT
  Sex: Female

DRUGS (2)
  1. HUMAN IMMUNOGLOBULIN G [Suspect]
     Active Substance: HUMAN IMMUNOGLOBULIN G
     Indication: Immunodeficiency common variable
     Dosage: 7.5 GRAM, 1/WEEK
     Route: 058
  2. HUMAN IMMUNOGLOBULIN G [Suspect]
     Active Substance: HUMAN IMMUNOGLOBULIN G
     Indication: Primary immunodeficiency syndrome

REACTIONS (11)
  - Rhinitis [Recovering/Resolving]
  - Tooth disorder [Unknown]
  - Feeding disorder [Unknown]
  - Speech disorder [Unknown]
  - Tendon rupture [Unknown]
  - Infusion site pruritus [Unknown]
  - Arthralgia [Unknown]
  - Migraine [Unknown]
  - Vein disorder [Unknown]
  - Arthritis [Unknown]
  - Rotator cuff syndrome [Unknown]
